FAERS Safety Report 7157133-9 (Version None)
Quarter: 2010Q4

REPORT INFORMATION
  Report Type: 
  Country: None (occurrence: None)
  Receive Date: 20101214
  Receipt Date: 20100105
  Transmission Date: 20110411
  Serious: No
  Sender: FDA-Public Use
  Company Number: US-ASTRAZENECA-2010SE00287

PATIENT
  Sex: Female
  Weight: 88 kg

DRUGS (6)
  1. CRESTOR [Suspect]
     Route: 048
  2. TRICOR [Concomitant]
  3. HIGH BLOOD PRESSURE MED [Concomitant]
  4. NAPROXEN [Concomitant]
  5. ANXIETY MEDICATION [Concomitant]
  6. DEPRESSION MEDICATION [Concomitant]

REACTIONS (3)
  - BLOOD CHOLESTEROL [None]
  - CONSTIPATION [None]
  - PALPITATIONS [None]
